FAERS Safety Report 12140662 (Version 1)
Quarter: 2016Q1

REPORT INFORMATION
  Report Type: Spontaneous
  Country: JP (occurrence: JP)
  Receive Date: 20160303
  Receipt Date: 20160303
  Transmission Date: 20160526
  Serious: Yes (Death)
  Sender: FDA-Public Use
  Company Number: JP-MALLINCKRODT-T201600708

PATIENT
  Age: 66 Year
  Sex: Male
  Weight: 52 kg

DRUGS (34)
  1. METHADONE [Suspect]
     Active Substance: METHADONE HYDROCHLORIDE
     Indication: CANCER PAIN
     Dosage: 10 MG, 20 MG DAILY DOSE
     Route: 048
     Dates: start: 20150624, end: 20150625
  2. MORPHINE [Concomitant]
     Active Substance: MORPHINE
     Indication: ANALGESIC THERAPY
     Dosage: PRN
     Route: 042
     Dates: start: 20150623
  3. RAMOSETRON HCL [Concomitant]
     Dosage: 0.3 MG
     Route: 051
     Dates: start: 20150622, end: 20150626
  4. RAMOSETRON HCL [Concomitant]
     Dosage: 0,3 MG
     Route: 051
     Dates: start: 20150706, end: 20150710
  5. RAMOSETRON HCL [Concomitant]
     Dosage: 0.3 MG
     Route: 051
     Dates: start: 20150713, end: 20150713
  6. ELNEOPA NO.1 [Concomitant]
     Dosage: 1 DF
     Route: 051
     Dates: start: 20150701, end: 20150714
  7. KETAMINE [Concomitant]
     Active Substance: KETAMINE
     Indication: ANALGESIC THERAPY
     Dosage: PRN.
     Route: 042
     Dates: start: 20150623
  8. PLATOSIN [Concomitant]
     Active Substance: CISPLATIN
     Dosage: 5 MG
     Route: 051
     Dates: start: 20150622, end: 20150626
  9. PLATOSIN [Concomitant]
     Active Substance: CISPLATIN
     Dosage: 5 MG
     Route: 051
     Dates: start: 20150629, end: 20150703
  10. ADONA [Concomitant]
     Active Substance: CARBAZOCHROME SODIUM SULFONATE
     Dosage: 3 DF
     Route: 048
  11. FESIN [Concomitant]
     Active Substance: IRON SUCROSE
     Dosage: 3 DF
     Route: 042
     Dates: start: 20150626, end: 20150706
  12. TAKEPRON [Concomitant]
     Active Substance: LANSOPRAZOLE
     Dosage: 1 DF
     Route: 048
  13. OPSO [Concomitant]
     Active Substance: MORPHINE HYDROCHLORIDE
     Indication: ANALGESIC THERAPY
     Dosage: PRN
     Route: 048
     Dates: start: 20160724
  14. PLATOSIN [Concomitant]
     Active Substance: CISPLATIN
     Dosage: 5 MG
     Route: 051
     Dates: start: 20150713, end: 20150713
  15. FLUOROURACIL. [Concomitant]
     Active Substance: FLUOROURACIL
     Dosage: 250 MG
     Route: 051
     Dates: start: 20150622, end: 20150626
  16. SOLDEM 3A [Concomitant]
     Active Substance: CARBOHYDRATES\POTASSIUM CHLORIDE\SODIUM CHLORIDE\SODIUM LACTATE
     Dosage: 1 DF
     Route: 051
     Dates: start: 20150715, end: 20150716
  17. ROHYPNOL [Concomitant]
     Active Substance: FLUNITRAZEPAM
     Dosage: 1 DF
     Route: 048
  18. LIDOCAINE. [Concomitant]
     Active Substance: LIDOCAINE
     Indication: ANALGESIC THERAPY
     Dosage: PRN
     Route: 042
     Dates: start: 20160623
  19. RAMOSETRON HCL [Concomitant]
     Dosage: 0,3 MG
     Route: 051
     Dates: start: 20150629, end: 20150703
  20. ADONA [Concomitant]
     Active Substance: CARBAZOCHROME SODIUM SULFONATE
     Dosage: 1 DF
     Route: 051
     Dates: start: 20150623, end: 20150626
  21. MAGLAX [Concomitant]
     Active Substance: MAGNESIUM OXIDE
     Dosage: 6 DF
     Route: 048
  22. METHADONE [Suspect]
     Active Substance: METHADONE HYDROCHLORIDE
     Dosage: 10 MG, 20 MG DAILY DOSE
     Route: 048
     Dates: start: 20150626, end: 20150629
  23. FLUOROURACIL. [Concomitant]
     Active Substance: FLUOROURACIL
     Dosage: 250 MG
     Route: 051
     Dates: start: 20150629, end: 20150703
  24. PRIMPERAN [Concomitant]
     Active Substance: METOCLOPRAMIDE HYDROCHLORIDE
     Dosage: 1 DF
     Route: 051
     Dates: start: 20150714, end: 20150714
  25. DEPAS [Concomitant]
     Active Substance: ETIZOLAM
     Dosage: 1 DF
     Route: 048
  26. PLATOSIN [Concomitant]
     Active Substance: CISPLATIN
     Dosage: 5 MG
     Route: 051
     Dates: start: 20150706, end: 20150710
  27. VEEN D [Concomitant]
     Active Substance: CALCIUM CHLORIDE\DEXTROSE\POTASSIUM CHLORIDE\SODIUM ACETATE\SODIUM CHLORIDE
     Dosage: 1 DF
     Route: 051
     Dates: start: 20150717, end: 20150723
  28. CALONAL [Concomitant]
     Active Substance: ACETAMINOPHEN
     Dosage: 2 DF
     Route: 048
  29. ABSTRAL [Concomitant]
     Active Substance: FENTANYL CITRATE
     Indication: ANALGESIC THERAPY
     Dosage: 100-200 MCG, PRN
     Route: 060
     Dates: start: 20160623
  30. CALCICOL [Concomitant]
     Active Substance: CALCIUM GLUCONATE
     Dosage: 2 DF
     Route: 051
     Dates: start: 20150622, end: 20150626
  31. FLUOROURACIL. [Concomitant]
     Active Substance: FLUOROURACIL
     Dosage: 250 MG
     Route: 051
     Dates: start: 20150706, end: 20150710
  32. NAUZELIN [Concomitant]
     Active Substance: DOMPERIDONE
     Dosage: 1 DF
     Route: 048
  33. FLUOROURACIL. [Concomitant]
     Active Substance: FLUOROURACIL
     Dosage: 250 MG
     Route: 051
     Dates: start: 20150713, end: 20150713
  34. BIO-THREE [Concomitant]
     Active Substance: HERBALS
     Dosage: 2 DF
     Route: 048

REACTIONS (2)
  - Oesophageal carcinoma [Fatal]
  - Somnolence [Recovered/Resolved]

NARRATIVE: CASE EVENT DATE: 20150629
